FAERS Safety Report 25837866 (Version 1)
Quarter: 2025Q3

REPORT INFORMATION
  Report Type: Spontaneous
  Country: US (occurrence: US)
  Receive Date: 20250923
  Receipt Date: 20250923
  Transmission Date: 20251021
  Serious: Yes (Hospitalization)
  Sender: MYLAN
  Company Number: US-MYLANLABS-2025M1080742

PATIENT
  Age: 61 Year
  Sex: Female

DRUGS (1)
  1. XANAX [Suspect]
     Active Substance: ALPRAZOLAM
     Indication: Depression

REACTIONS (4)
  - Intentional overdose [Unknown]
  - Brain injury [Unknown]
  - Leukoencephalopathy [Unknown]
  - Mental status changes [Unknown]
